FAERS Safety Report 5610774-X (Version None)
Quarter: 2008Q1

REPORT INFORMATION
  Report Type: 
  Country: None (occurrence: None)
  Receive Date: 20080201
  Receipt Date: 20080125
  Transmission Date: 20080703
  Serious: Yes (Hospitalization)
  Sender: FDA-Public Use
  Company Number: PHHO2008US01570

PATIENT
  Age: 80 Year
  Sex: Female
  Weight: 58 kg

DRUGS (1)
  1. AMN107 [Suspect]
     Indication: GASTROINTESTINAL STROMAL TUMOUR
     Dosage: 200 MG, BID
     Route: 048
     Dates: start: 20070213

REACTIONS (10)
  - ANAEMIA [None]
  - CARDIAC FAILURE CONGESTIVE [None]
  - CHEST PAIN [None]
  - COUGH [None]
  - DYSPNOEA [None]
  - MYOCARDIAL ISCHAEMIA [None]
  - PLEURAL EFFUSION [None]
  - PNEUMONIA [None]
  - PYREXIA [None]
  - URINARY TRACT INFECTION [None]
